FAERS Safety Report 22320826 (Version 1)
Quarter: 2023Q2

REPORT INFORMATION
  Report Type: Spontaneous
  Country: MX (occurrence: MX)
  Receive Date: 20230515
  Receipt Date: 20230515
  Transmission Date: 20230721
  Serious: Yes (Hospitalization, Other)
  Sender: FDA-Public Use
  Company Number: MX-PFIZER INC-PV202300084016

PATIENT
  Sex: Female

DRUGS (3)
  1. AVIBACTAM SODIUM\CEFTAZIDIME [Interacting]
     Active Substance: AVIBACTAM SODIUM\CEFTAZIDIME
     Indication: Pseudomonas infection
     Dosage: 2.5 G, TID
  2. QUETIAPINE [Interacting]
     Active Substance: QUETIAPINE
     Indication: Product used for unknown indication
     Dosage: UNK
  3. MIRTAZAPINE [Interacting]
     Active Substance: MIRTAZAPINE
     Indication: Product used for unknown indication
     Dosage: UNK

REACTIONS (2)
  - Neurotoxicity [Unknown]
  - Drug interaction [Unknown]
